FAERS Safety Report 20698442 (Version 1)
Quarter: 2022Q2

REPORT INFORMATION
  Report Type: Spontaneous
  Country: CN (occurrence: CN)
  Receive Date: 20220412
  Receipt Date: 20220412
  Transmission Date: 20220721
  Serious: Yes (Hospitalization)
  Sender: FDA-Public Use
  Company Number: CN-SAMIL-GLO2022CN001904

PATIENT

DRUGS (19)
  1. LEUKERAN [Suspect]
     Active Substance: CHLORAMBUCIL
     Indication: Chronic lymphocytic leukaemia
     Dosage: 22 MG, QD
     Route: 048
     Dates: start: 20211015, end: 20211015
  2. LEUKERAN [Suspect]
     Active Substance: CHLORAMBUCIL
     Dosage: 22 MG, QD
     Route: 048
     Dates: start: 20211029, end: 20211029
  3. LEUKERAN [Suspect]
     Active Substance: CHLORAMBUCIL
     Dosage: 24 MG, QD
     Route: 048
     Dates: start: 20211110, end: 20211110
  4. LEUKERAN [Suspect]
     Active Substance: CHLORAMBUCIL
     Dosage: 22 MG, QD
     Route: 048
     Dates: start: 20211124, end: 20211124
  5. LEUKERAN [Suspect]
     Active Substance: CHLORAMBUCIL
     Dosage: 22 MG, QD
     Route: 048
     Dates: start: 20211215, end: 20211215
  6. LEUKERAN [Suspect]
     Active Substance: CHLORAMBUCIL
     Dosage: 22 MG, QD
     Route: 048
     Dates: start: 20211229, end: 20211229
  7. LEUKERAN [Suspect]
     Active Substance: CHLORAMBUCIL
     Dosage: 22 MG, QD
     Route: 048
     Dates: start: 20220114, end: 20220114
  8. LEUKERAN [Suspect]
     Active Substance: CHLORAMBUCIL
     Dosage: 22 MG, QD
     Route: 048
     Dates: start: 20220127, end: 20220127
  9. LEUKERAN [Suspect]
     Active Substance: CHLORAMBUCIL
     Dosage: 24 MG, QD
     Route: 048
     Dates: start: 20220209, end: 20220209
  10. LEUKERAN [Suspect]
     Active Substance: CHLORAMBUCIL
     Dosage: 24 MG, QD
     Route: 048
     Dates: start: 20220223, end: 20220223
  11. LEUKERAN [Suspect]
     Active Substance: CHLORAMBUCIL
     Dosage: 24 MG, QD
     Route: 048
     Dates: start: 20220303, end: 20220303
  12. LEUKERAN [Suspect]
     Active Substance: CHLORAMBUCIL
     Dosage: 24 MG, QD
     Route: 048
     Dates: start: 20220317, end: 20220317
  13. RITUXIMAB [Suspect]
     Active Substance: RITUXIMAB
     Indication: Chronic lymphocytic leukaemia
     Dosage: 747 MG, QD
     Route: 041
     Dates: start: 20211110, end: 20211110
  14. RITUXIMAB [Suspect]
     Active Substance: RITUXIMAB
     Dosage: 757 MG, QD
     Route: 041
     Dates: start: 20211215, end: 20211215
  15. RITUXIMAB [Suspect]
     Active Substance: RITUXIMAB
     Dosage: 759 MG, QD
     Route: 041
     Dates: start: 20220115, end: 20220115
  16. RITUXIMAB [Suspect]
     Active Substance: RITUXIMAB
     Dosage: 766 MG, QD
     Route: 041
     Dates: start: 20220209, end: 20220209
  17. RITUXIMAB [Suspect]
     Active Substance: RITUXIMAB
     Dosage: 765 MG, QD
     Route: 041
     Dates: start: 20220303, end: 20220303
  18. RITUXIMAB [Suspect]
     Active Substance: RITUXIMAB
     Dosage: 553 MG, QD
     Route: 041
     Dates: start: 20211015, end: 20211015
  19. VALACYCLOVIR HYDROCHLORIDE [Concomitant]
     Active Substance: VALACYCLOVIR HYDROCHLORIDE
     Indication: Infection prophylaxis
     Dosage: 0.3 G, BID
     Route: 048
     Dates: start: 20220114, end: 20220310

REACTIONS (1)
  - Breast mass [Unknown]

NARRATIVE: CASE EVENT DATE: 20220324
